FAERS Safety Report 6680339-X (Version None)
Quarter: 2010Q2

REPORT INFORMATION
  Report Type: 
  Country: None (occurrence: None)
  Receive Date: 20100412
  Receipt Date: 20100324
  Transmission Date: 20101027
  Serious: Yes (Other)
  Sender: FDA-Public Use
  Company Number: 1-21757716

PATIENT
  Age: 80 Year
  Sex: Female

DRUGS (5)
  1. WARFARIN SODIUM [Suspect]
     Indication: THROMBOSIS PROPHYLAXIS
     Dosage: , ONCE DAILY, ORAL
     Route: 048
     Dates: start: 20100113
  2. VITAMIN K ANTAGONIST (WARFARIN) 2 MG [Concomitant]
  3. DRONEDARONE HCL [Concomitant]
  4. ATACAND [Concomitant]
  5. METOPROLOL TARTRATE [Concomitant]

REACTIONS (2)
  - ACCIDENTAL OVERDOSE [None]
  - INTERNATIONAL NORMALISED RATIO INCREASED [None]
